FAERS Safety Report 17164199 (Version 2)
Quarter: 2019Q4

REPORT INFORMATION
  Report Type: Spontaneous
  Country: US (occurrence: US)
  Receive Date: 20191217
  Receipt Date: 20191218
  Transmission Date: 20200122
  Serious: No
  Sender: FDA-Public Use
  Company Number: US-PFIZER INC-2019541845

PATIENT

DRUGS (1)
  1. PREGABALIN. [Suspect]
     Active Substance: PREGABALIN
     Dosage: UNK

REACTIONS (6)
  - Back pain [Unknown]
  - Oropharyngeal pain [Unknown]
  - Headache [Unknown]
  - Sinus congestion [Unknown]
  - Pain in extremity [Unknown]
  - Chills [Unknown]
